FAERS Safety Report 9832633 (Version 1)
Quarter: 2014Q1

REPORT INFORMATION
  Report Type: Spontaneous
  Country: US (occurrence: US)
  Receive Date: 20140121
  Receipt Date: 20140121
  Transmission Date: 20141002
  Serious: Yes (Other)
  Sender: FDA-Public Use
  Company Number: US-ROCHE-1333106

PATIENT
  Sex: Male
  Weight: 158.9 kg

DRUGS (7)
  1. ERIVEDGE [Suspect]
     Indication: BASAL CELL NAEVUS SYNDROME
     Route: 048
     Dates: start: 201303
  2. ERIVEDGE [Suspect]
     Route: 048
  3. ERIVEDGE [Suspect]
     Route: 048
     Dates: start: 201401
  4. DETROL [Concomitant]
     Indication: POLLAKIURIA
  5. AZELASTINE [Concomitant]
     Route: 045
  6. ATORVASTATIN [Concomitant]
  7. OMEPRAZOLE [Concomitant]

REACTIONS (12)
  - Cataract subcapsular [Not Recovered/Not Resolved]
  - Alopecia [Not Recovered/Not Resolved]
  - Weight decreased [Not Recovered/Not Resolved]
  - Ageusia [Not Recovered/Not Resolved]
  - Muscle spasms [Not Recovered/Not Resolved]
  - Muscle spasms [Not Recovered/Not Resolved]
  - Fatigue [Not Recovered/Not Resolved]
  - Diarrhoea [Not Recovered/Not Resolved]
  - Decreased appetite [Not Recovered/Not Resolved]
  - Constipation [Not Recovered/Not Resolved]
  - Arthralgia [Not Recovered/Not Resolved]
  - Madarosis [Not Recovered/Not Resolved]
